FAERS Safety Report 6368808-3 (Version None)
Quarter: 2009Q3

REPORT INFORMATION
  Report Type: 
  Country: None (occurrence: None)
  Receive Date: 20090917
  Receipt Date: 20090917
  Transmission Date: 20100115
  Serious: Yes (Disabling)
  Sender: FDA-Public Use
  Company Number: None

PATIENT
  Age: 79 Year
  Sex: Male
  Weight: 77.7 kg

DRUGS (16)
  1. LAPATINIB [Suspect]
     Indication: TONSIL CANCER
     Dosage: 1500MG DAILY ORAL
     Route: 048
     Dates: start: 20090720, end: 20090902
  2. RADIATION THERAPY [Concomitant]
  3. ACETAMINOPHEN [Concomitant]
  4. ALBUTEROL [Concomitant]
  5. DEXTROSE [Concomitant]
  6. FAMOTIDINE [Concomitant]
  7. HALOPERIDOL [Concomitant]
  8. HEPARIN [Concomitant]
  9. HYDROMORPHONE HCL [Concomitant]
  10. IINSULIN [Concomitant]
  11. MAGNESIUM SULFATE [Concomitant]
  12. POTASSIUM CHLORIDE [Concomitant]
  13. SIMVASTATIN [Concomitant]
  14. FUROSEMIDE [Concomitant]
  15. LISINOPRIL [Concomitant]
  16. PSEUDOEPHEDRINE HCL [Concomitant]

REACTIONS (4)
  - FALL [None]
  - FEMUR FRACTURE [None]
  - GAIT DISTURBANCE [None]
  - HYPOTENSION [None]
